FAERS Safety Report 7362601-0 (Version None)
Quarter: 2011Q1

REPORT INFORMATION
  Report Type: 
  Country: None (occurrence: None)
  Receive Date: 20110320
  Receipt Date: 20100903
  Transmission Date: 20110831
  Serious: Yes (Hospitalization)
  Sender: FDA-Public Use
  Company Number: US-BAYER-201011966NA

PATIENT
  Sex: Female
  Weight: 68 kg

DRUGS (8)
  1. NAPROXEN [Concomitant]
     Route: 065
     Dates: start: 20080601
  2. ALEVE [Concomitant]
     Route: 065
  3. PROVERA [Concomitant]
     Indication: AMENORRHOEA
     Dosage: 10 MG, UNK
  4. YASMIN [Suspect]
     Indication: CONTRACEPTION
     Route: 048
     Dates: start: 20061201, end: 20070213
  5. ADVIL LIQUI-GELS [Concomitant]
     Route: 065
  6. RITALIN [Concomitant]
     Dosage: DAILY DOSE 20 MG
  7. ATIVAN [Concomitant]
     Dosage: 0.5 MG, PRN
  8. ERYTHROMYCIN ETHYLSUCCINATE [Concomitant]
     Dosage: 400 MG, TID

REACTIONS (2)
  - PAIN IN EXTREMITY [None]
  - DEEP VEIN THROMBOSIS [None]
